FAERS Safety Report 19820417 (Version 1)
Quarter: 2021Q3

REPORT INFORMATION
  Report Type: Spontaneous
  Country: US (occurrence: US)
  Receive Date: 20210913
  Receipt Date: 20210913
  Transmission Date: 20211014
  Serious: No
  Sender: FDA-Public Use
  Company Number: US-TEVA-2021-US-1950536

PATIENT
  Age: 61 Year
  Sex: Male

DRUGS (2)
  1. MUPIROCIN. [Suspect]
     Active Substance: MUPIROCIN
     Route: 061
     Dates: start: 2021
  2. MUPIROCIN. [Suspect]
     Active Substance: MUPIROCIN
     Indication: ARTHROPOD BITE
     Route: 061

REACTIONS (3)
  - Prostatic specific antigen increased [Not Recovered/Not Resolved]
  - Product use in unapproved indication [Unknown]
  - Product use issue [Unknown]

NARRATIVE: CASE EVENT DATE: 2021
